FAERS Safety Report 9836486 (Version 1)
Quarter: 2014Q1

REPORT INFORMATION
  Report Type: Spontaneous
  Country: US (occurrence: US)
  Receive Date: 20140123
  Receipt Date: 20140123
  Transmission Date: 20141002
  Serious: Yes (Death)
  Sender: FDA-Public Use
  Company Number: US-BRISTOL-MYERS SQUIBB COMPANY-20034914

PATIENT
  Age: 88 Year
  Sex: Male
  Weight: 77.1 kg

DRUGS (1)
  1. ONGLYZA TABS 2.5 MG [Suspect]

REACTIONS (1)
  - General physical health deterioration [Fatal]
